FAERS Safety Report 7919235-6 (Version None)
Quarter: 2011Q4

REPORT INFORMATION
  Report Type: 
  Country: None (occurrence: None)
  Receive Date: 20111114
  Receipt Date: 20111027
  Transmission Date: 20120403
  Serious: Yes (Hospitalization)
  Sender: FDA-Public Use
  Company Number: 2011MA016253

PATIENT
  Age: 71 Year
  Sex: Male

DRUGS (1)
  1. FEVERALL [Suspect]

REACTIONS (1)
  - RASH MORBILLIFORM [None]
